FAERS Safety Report 6999756-3 (Version None)
Quarter: 2010Q3

REPORT INFORMATION
  Report Type: 
  Country: None (occurrence: None)
  Receive Date: 20100920
  Receipt Date: 20100119
  Transmission Date: 20110219
  Serious: No
  Sender: FDA-Public Use
  Company Number: US-ASTRAZENECA-2010SE02416

PATIENT
  Age: 4694 Day
  Sex: Male

DRUGS (4)
  1. SEROQUEL XR [Suspect]
     Indication: AFFECTIVE DISORDER
     Route: 048
     Dates: start: 20090801, end: 20091223
  2. SEROQUEL XR [Suspect]
     Route: 048
     Dates: start: 20091223, end: 20100101
  3. SEROQUEL XR [Suspect]
     Route: 048
     Dates: start: 20100105, end: 20100110
  4. LAMICTAL [Concomitant]

REACTIONS (1)
  - INFLUENZA LIKE ILLNESS [None]
